FAERS Safety Report 5129207-5 (Version None)
Quarter: 2006Q3

REPORT INFORMATION
  Report Type: 
  Country: None (occurrence: None)
  Receive Date: 20060928
  Receipt Date: 20060914
  Transmission Date: 20061208
  Serious: No
  Sender: FDA-Public Use
  Company Number: 200610114BBE

PATIENT
  Age: 68 Year
  Sex: Female

DRUGS (3)
  1. GAMUNEX [Suspect]
     Indication: NEUROPATHY
     Dosage: 20 G, TOTAL DAILY, INTRAVENOUS; 10 G, TOTAL DAILY, INTRAVENOUS
     Route: 042
     Dates: start: 20060401
  2. GAMUNEX [Suspect]
     Indication: NEUROPATHY
     Dosage: 20 G, TOTAL DAILY, INTRAVENOUS; 10 G, TOTAL DAILY, INTRAVENOUS
     Route: 042
     Dates: start: 20060401
  3. GAMUNEX [Suspect]

REACTIONS (5)
  - BODY TEMPERATURE INCREASED [None]
  - CHEST DISCOMFORT [None]
  - DYSPNOEA [None]
  - OXYGEN SATURATION ABNORMAL [None]
  - RESPIRATORY RATE INCREASED [None]
